FAERS Safety Report 10062796 (Version 1)
Quarter: 2014Q1

REPORT INFORMATION
  Report Type: Spontaneous
  Country: US (occurrence: None)
  Receive Date: 20140328
  Receipt Date: 20140328
  Transmission Date: 20141002
  Serious: Yes (Other)
  Sender: FDA-Public Use
  Company Number: CABO-13003806

PATIENT
  Age: 58 Year
  Sex: Male
  Weight: 77.6 kg

DRUGS (6)
  1. COMETRIQ [Suspect]
     Indication: MEDULLARY THYROID CANCER
     Route: 048
     Dates: start: 201305, end: 201312
  2. IMODIUM (LOPERAMIDE HYDROCHLORIDE) (LOPERAMIDE) [Concomitant]
  3. LOMOTIL (ATROPINE SULFATE, DIPHENOXYLATE HYDROCHLORIDE) [Concomitant]
  4. SYNTHROID (LEVOTHROXINE SODIUM) [Concomitant]
  5. CHOLECALCIFEROL (COLECALCIFEROL) [Concomitant]
  6. TRAMADOL (TRAMADOL HYDROCHLORIDE) [Concomitant]

REACTIONS (1)
  - Pancreatitis acute [None]
